FAERS Safety Report 14056515 (Version 1)
Quarter: 2017Q4

REPORT INFORMATION
  Report Type: Report from Study
  Country: US (occurrence: US)
  Receive Date: 20171006
  Receipt Date: 20171006
  Transmission Date: 20180321
  Serious: No
  Sender: FDA-Public Use
  Company Number: US-AMGEN-USASL2017149585

PATIENT
  Age: 49 Year
  Sex: Female

DRUGS (3)
  1. ENBREL [Suspect]
     Active Substance: ETANERCEPT
     Dosage: 50 MG, QWK
     Route: 065
     Dates: start: 201709
  2. ENBREL [Suspect]
     Active Substance: ETANERCEPT
     Indication: RHEUMATOID ARTHRITIS
     Dosage: 50 MG, QWK
     Route: 065
     Dates: start: 201709, end: 201709
  3. ENBREL [Suspect]
     Active Substance: ETANERCEPT
     Dosage: 50 MG, QWK
     Route: 065
     Dates: start: 201709, end: 201709

REACTIONS (14)
  - Dry throat [Unknown]
  - Injection site pruritus [Recovered/Resolved]
  - Injection site hypersensitivity [Unknown]
  - Injection site bruising [Unknown]
  - Injection site nodule [Unknown]
  - Drug dispensing error [Unknown]
  - Headache [Unknown]
  - Fatigue [Unknown]
  - Throat irritation [Unknown]
  - Sinus disorder [Unknown]
  - Injection site erythema [Unknown]
  - Injection site warmth [Recovered/Resolved]
  - Injection site swelling [Unknown]
  - Injection site discolouration [Not Recovered/Not Resolved]

NARRATIVE: CASE EVENT DATE: 201709
